FAERS Safety Report 4500308-5 (Version None)
Quarter: 2004Q4

REPORT INFORMATION
  Report Type: 
  Country: None (occurrence: None)
  Receive Date: 20041109
  Receipt Date: 20041025
  Transmission Date: 20050328
  Serious: Yes (Hospitalization)
  Sender: FDA-Public Use
  Company Number: 2004241051US

PATIENT
  Age: 34 Year
  Sex: Female
  Weight: 60 kg

DRUGS (1)
  1. DELTASONE [Suspect]

REACTIONS (5)
  - ACETABULUM FRACTURE [None]
  - HIP FRACTURE [None]
  - JOINT DISLOCATION [None]
  - OSTEONECROSIS [None]
  - POST PROCEDURAL COMPLICATION [None]
